FAERS Safety Report 5832513-X (Version None)
Quarter: 2008Q3

REPORT INFORMATION
  Report Type: 
  Country: None (occurrence: None)
  Receive Date: 20080722
  Receipt Date: 20080414
  Transmission Date: 20090109
  Serious: Yes (Hospitalization)
  Sender: FDA-Public Use
  Company Number: 193540

PATIENT
  Age: 50 Year
  Sex: Female
  Weight: 104.3273 kg

DRUGS (9)
  1. AVONEX [Suspect]
     Indication: MULTIPLE SCLEROSIS
     Dosage: 30 UG;QW;IM; 30 UG;QW;IM; 30 UG;QW;IM
     Route: 030
     Dates: start: 20030801, end: 20030101
  2. AVONEX [Suspect]
     Indication: MULTIPLE SCLEROSIS
     Dosage: 30 UG;QW;IM; 30 UG;QW;IM; 30 UG;QW;IM
     Route: 030
     Dates: start: 19980801, end: 20030801
  3. AVONEX [Suspect]
     Indication: MULTIPLE SCLEROSIS
     Dosage: 30 UG;QW;IM; 30 UG;QW;IM; 30 UG;QW;IM
     Route: 030
     Dates: start: 20030101
  4. AMITRIPTYLINE HCL [Concomitant]
  5. IBUPROFEN [Concomitant]
  6. BACLOFEN [Concomitant]
  7. LISINOPRIL [Concomitant]
  8. ELAVIL [Concomitant]
  9. ZANAFLEX [Concomitant]

REACTIONS (5)
  - BLOOD CHOLESTEROL INCREASED [None]
  - CHEST PAIN [None]
  - INFLUENZA LIKE ILLNESS [None]
  - RASH [None]
  - SKIN LESION [None]
